FAERS Safety Report 4674170-4 (Version None)
Quarter: 2005Q2

REPORT INFORMATION
  Report Type: 
  Country: None (occurrence: None)
  Receive Date: 20050524
  Receipt Date: 20050524
  Transmission Date: 20051028
  Serious: No
  Sender: FDA-Public Use
  Company Number: None

PATIENT
  Sex: Male
  Weight: 78.3 kg

DRUGS (3)
  1. PACLITAXEL [Suspect]
     Indication: NON-SMALL CELL LUNG CANCER
     Dosage: SEE IMAGE
     Dates: start: 20050509
  2. CARBOPLATIN [Suspect]
     Dosage: SEE IMAGE
  3. RADIOTHERAPY [Suspect]
     Dosage: 6600 CGY TOTAL DOSE. GIVEN AS 5 FRACTIONS/WEEK X 7 WEEKS BEGINNING ON DAY 43

REACTIONS (17)
  - ACTIVATED PARTIAL THROMBOPLASTIN TIME SHORTENED [None]
  - ANXIETY [None]
  - ASPARTATE AMINOTRANSFERASE INCREASED [None]
  - CARDIAC DISORDER [None]
  - CARDIAC FAILURE CONGESTIVE [None]
  - CHEST DISCOMFORT [None]
  - CHILLS [None]
  - CREATINE PHOSPHOKINASE DECREASED [None]
  - CULTURE URINE POSITIVE [None]
  - ELECTROCARDIOGRAM ST SEGMENT ABNORMAL [None]
  - FEBRILE NEUTROPENIA [None]
  - HYPERKALAEMIA [None]
  - PROTHROMBIN TIME SHORTENED [None]
  - RENAL FAILURE [None]
  - SINUS ARRHYTHMIA [None]
  - STAPHYLOCOCCAL INFECTION [None]
  - TREMOR [None]
